FAERS Safety Report 5713498-3 (Version None)
Quarter: 2008Q2

REPORT INFORMATION
  Report Type: 
  Country: None (occurrence: None)
  Receive Date: 20080422
  Receipt Date: 20080410
  Transmission Date: 20081010
  Serious: Yes (Other)
  Sender: FDA-Public Use
  Company Number: US-PFIZER INC-2008032764

PATIENT
  Age: 53 Year
  Sex: Female
  Weight: 63.5 kg

DRUGS (8)
  1. CHANTIX [Suspect]
     Indication: SMOKING CESSATION THERAPY
  2. ALCOHOL [Suspect]
  3. PAROXETINE HCL [Concomitant]
     Indication: DEPRESSION
  4. DIPHENHYDRAMINE [Concomitant]
  5. ALL OTHER THERAPEUTIC PRODUCTS [Concomitant]
  6. ASCORBIC ACID [Concomitant]
  7. VITAMIN CAP [Concomitant]
  8. EVENING PRIMROSE OIL [Concomitant]

REACTIONS (6)
  - ABNORMAL DREAMS [None]
  - ALCOHOL USE [None]
  - ANXIETY [None]
  - CONDITION AGGRAVATED [None]
  - DEPRESSION [None]
  - HOT FLUSH [None]
